FAERS Safety Report 5238290-8 (Version None)
Quarter: 2007Q1

REPORT INFORMATION
  Report Type: 
  Country: None (occurrence: None)
  Receive Date: 20061208
  Receipt Date: 20050527
  Transmission Date: 20070707
  Serious: Yes (Other)
  Sender: FDA-Public Use
  Company Number: 2005UW08206

PATIENT
  Age: 73 Year
  Sex: Female
  Weight: 33.9481 kg

DRUGS (5)
  1. CRESTOR [Suspect]
     Indication: BLOOD CHOLESTEROL INCREASED
     Dosage: 20 MG PO
     Route: 048
     Dates: start: 20040501, end: 20040101
  2. SYNTHROID [Concomitant]
  3. VITAMINS [Concomitant]
  4. POTASSIUM ACETATE [Concomitant]
  5. ATENOLOL [Concomitant]

REACTIONS (2)
  - KIDNEY INFECTION [None]
  - MUSCULAR WEAKNESS [None]
